FAERS Safety Report 14690319 (Version 2)
Quarter: 2019Q1

REPORT INFORMATION
  Report Type: Spontaneous
  Country: US (occurrence: US)
  Receive Date: 20180328
  Receipt Date: 20190318
  Transmission Date: 20190417
  Serious: No
  Sender: FDA-Public Use
  Company Number: US-SHIRE-US201811578

PATIENT

DRUGS (1)
  1. FIRAZYR [Suspect]
     Active Substance: ICATIBANT ACETATE
     Indication: PRODUCT USED FOR UNKNOWN INDICATION
     Route: 065

REACTIONS (2)
  - Urticaria [Recovered/Resolved]
  - Drug hypersensitivity [Unknown]
